FAERS Safety Report 21357895 (Version 1)
Quarter: 2022Q3

REPORT INFORMATION
  Report Type: Spontaneous
  Country: US (occurrence: US)
  Receive Date: 20220921
  Receipt Date: 20220921
  Transmission Date: 20221027
  Serious: No
  Sender: FDA-Public Use
  Company Number: US-GSK-US2022133734

PATIENT
  Age: 65 Year
  Sex: Male

DRUGS (1)
  1. MEPRON [Suspect]
     Active Substance: ATOVAQUONE
     Indication: Liver transplant
     Dosage: QD (ORAL SUSPENSION, MEPRON 750 MG/5ML SUS 210 ML, ONCE DAILY)
     Route: 048
     Dates: end: 20220907

REACTIONS (1)
  - Product dose omission issue [Not Recovered/Not Resolved]

NARRATIVE: CASE EVENT DATE: 20220907
